FAERS Safety Report 21555239 (Version 1)
Quarter: 2022Q4

REPORT INFORMATION
  Report Type: Spontaneous
  Country: ES (occurrence: ES)
  Receive Date: 20221104
  Receipt Date: 20221104
  Transmission Date: 20230113
  Serious: Yes (Death, Other)
  Sender: FDA-Public Use
  Company Number: ES-AMGEN-ESPSP2022189249

PATIENT

DRUGS (1)
  1. BLINATUMOMAB [Suspect]
     Active Substance: BLINATUMOMAB
     Indication: B precursor type acute leukaemia
     Dosage: UNK
     Route: 065

REACTIONS (5)
  - B precursor type acute leukaemia [Fatal]
  - Complications of transplant surgery [Fatal]
  - Neurotoxicity [Recovered/Resolved]
  - Haemodynamic instability [Recovered/Resolved]
  - Off label use [Unknown]
